FAERS Safety Report 12675270 (Version 1)
Quarter: 2016Q3

REPORT INFORMATION
  Report Type: Spontaneous
  Country: CA (occurrence: CA)
  Receive Date: 20160823
  Receipt Date: 20160823
  Transmission Date: 20161109
  Serious: Yes (Disabling, Other)
  Sender: FDA-Public Use
  Company Number: CA-ROCHE-1815791

PATIENT
  Age: 9 Year
  Sex: Female

DRUGS (5)
  1. XOLAIR [Suspect]
     Active Substance: OMALIZUMAB
     Indication: ASTHMA
     Route: 058
     Dates: start: 20150219
  2. SINGULAIR [Concomitant]
     Active Substance: MONTELUKAST SODIUM
     Indication: PRODUCT USED FOR UNKNOWN INDICATION
     Dosage: STOPPED 6 WEEKS AGO
     Route: 065
  3. VENTOLINE [Concomitant]
     Active Substance: ALBUTEROL
     Indication: PRODUCT USED FOR UNKNOWN INDICATION
     Route: 065
  4. FLOVENT [Concomitant]
     Active Substance: FLUTICASONE PROPIONATE
     Indication: PRODUCT USED FOR UNKNOWN INDICATION
     Route: 065
  5. XOLAIR [Suspect]
     Active Substance: OMALIZUMAB
     Route: 058
     Dates: start: 20150723

REACTIONS (14)
  - Skin plaque [Unknown]
  - Pruritus [Unknown]
  - Infection [Unknown]
  - Torticollis [Unknown]
  - Rheumatoid arthritis [Unknown]
  - Headache [Recovered/Resolved]
  - Dyspnoea exertional [Unknown]
  - Food allergy [Unknown]
  - Stress [Unknown]
  - Tendonitis [Unknown]
  - Urticaria [Unknown]
  - Injection site rash [Unknown]
  - Shoulder deformity [Unknown]
  - Pyrexia [Unknown]

NARRATIVE: CASE EVENT DATE: 20150219
